FAERS Safety Report 4846263-X (Version None)
Quarter: 2005Q4

REPORT INFORMATION
  Report Type: 
  Country: None (occurrence: None)
  Receive Date: 20051130
  Receipt Date: 20051116
  Transmission Date: 20060501
  Serious: Yes (Other)
  Sender: FDA-Public Use
  Company Number: 2005US001685

PATIENT
  Age: 13 Year
  Sex: Female

DRUGS (1)
  1. PROTOPIC [Suspect]

REACTIONS (1)
  - MYCOSIS FUNGOIDES [None]
